FAERS Safety Report 24177604 (Version 1)
Quarter: 2024Q3

REPORT INFORMATION
  Report Type: Spontaneous
  Country: US (occurrence: None)
  Receive Date: 20240805
  Receipt Date: 20240805
  Transmission Date: 20241016
  Serious: No
  Sender: Public
  Company Number: None

PATIENT

DRUGS (1)
  1. SUMATRIPTAN [Suspect]
     Active Substance: SUMATRIPTAN
     Dosage: SOLUTION INJECTION
     Route: 042

REACTIONS (4)
  - Flushing [None]
  - Vision blurred [None]
  - Incorrect route of product administration [None]
  - Product packaging confusion [None]
